FAERS Safety Report 4560248-2 (Version None)
Quarter: 2005Q1

REPORT INFORMATION
  Report Type: 
  Country: None (occurrence: None)
  Receive Date: 20050120
  Receipt Date: 20050120
  Transmission Date: 20050727
  Serious: No
  Sender: FDA-Public Use
  Company Number: None

PATIENT

DRUGS (1)
  1. VIAGRA [Suspect]
     Dosage: 8 TABLETS BOTTLE
     Dates: start: 20021224, end: 20030515

REACTIONS (6)
  - CYANOPSIA [None]
  - DEFORMITY [None]
  - DISCOMFORT [None]
  - DYSPAREUNIA [None]
  - PENIS DEVIATION [None]
  - VISION BLURRED [None]
